FAERS Safety Report 20375845 (Version 2)
Quarter: 2022Q1

REPORT INFORMATION
  Report Type: Spontaneous
  Country: JP (occurrence: JP)
  Receive Date: 20220125
  Receipt Date: 20220201
  Transmission Date: 20220423
  Serious: Yes (Death, Hospitalization, Other)
  Sender: FDA-Public Use
  Company Number: JP-PFIZER INC-202200094381

PATIENT
  Age: 78 Year
  Sex: Male

DRUGS (1)
  1. VYNDAQEL [Suspect]
     Active Substance: TAFAMIDIS MEGLUMINE
     Indication: Cardiac amyloidosis
     Dosage: 80 MG, DAILY
     Route: 048
     Dates: start: 202007, end: 202103

REACTIONS (4)
  - Arrhythmia [Fatal]
  - Cardiac amyloidosis [Fatal]
  - Condition aggravated [Fatal]
  - Physical deconditioning [Not Recovered/Not Resolved]

NARRATIVE: CASE EVENT DATE: 20211201
